FAERS Safety Report 19457123 (Version 1)
Quarter: 2021Q2

REPORT INFORMATION
  Report Type: Report from Study
  Country: US (occurrence: US)
  Receive Date: 20210624
  Receipt Date: 20210624
  Transmission Date: 20210717
  Serious: Yes (Death, Other)
  Sender: FDA-Public Use
  Company Number: US-INSMED, INC.-US-INS-20-01948

PATIENT
  Age: 69 Year
  Sex: Female

DRUGS (1)
  1. ARIKAYCE [Suspect]
     Active Substance: AMIKACIN
     Indication: MYCOBACTERIUM AVIUM COMPLEX INFECTION
     Dosage: 590 MILLIGRAM, TIW
     Route: 055
     Dates: start: 20201023, end: 20201120

REACTIONS (13)
  - Sputum increased [Unknown]
  - Therapy interrupted [Unknown]
  - Death [Fatal]
  - Dyspnoea [Unknown]
  - Wheezing [Recovering/Resolving]
  - Rheumatoid arthritis [Not Recovered/Not Resolved]
  - Hospice care [Unknown]
  - Fatigue [Unknown]
  - Oxygen saturation decreased [Unknown]
  - Salivary hypersecretion [Unknown]
  - Chest discomfort [Recovering/Resolving]
  - Off label use [Unknown]
  - Cough [Unknown]

NARRATIVE: CASE EVENT DATE: 2020
